FAERS Safety Report 10142755 (Version 1)
Quarter: 2014Q2

REPORT INFORMATION
  Report Type: Spontaneous
  Country: US (occurrence: None)
  Receive Date: 20140429
  Receipt Date: 20140429
  Transmission Date: 20141212
  Serious: Yes (Hospitalization)
  Sender: FDA-Public Use
  Company Number: None

PATIENT
  Age: 62 Year
  Sex: Female

DRUGS (1)
  1. AFINITOR 10 MG NOVARTIS PHARMACEUTICALS CORP [Suspect]
     Route: 048
     Dates: start: 20140329

REACTIONS (1)
  - Cardiac failure congestive [None]
